FAERS Safety Report 22029777 (Version 2)
Quarter: 2023Q1

REPORT INFORMATION
  Report Type: Spontaneous
  Country: US (occurrence: US)
  Receive Date: 20230223
  Receipt Date: 20230306
  Transmission Date: 20230418
  Serious: Yes (Life-Threatening, Hospitalization)
  Sender: FDA-Public Use
  Company Number: US-TEVA-2023-US-2857541

PATIENT
  Age: 67 Year
  Sex: Female

DRUGS (3)
  1. NOREPINEPHRINE [Suspect]
     Active Substance: NOREPINEPHRINE
     Indication: Distributive shock
     Route: 065
  2. CALCIUM [Suspect]
     Active Substance: CALCIUM
     Indication: Distributive shock
     Route: 042
  3. GLUCAGON [Suspect]
     Active Substance: GLUCAGON
     Indication: Distributive shock
     Route: 065

REACTIONS (1)
  - Drug ineffective [Unknown]
